FAERS Safety Report 19912024 (Version 1)
Quarter: 2021Q4

REPORT INFORMATION
  Report Type: Spontaneous
  Country: US (occurrence: US)
  Receive Date: 20211004
  Receipt Date: 20211004
  Transmission Date: 20220303
  Serious: Yes (Other)
  Sender: FDA-Public Use
  Company Number: US-CIPLA LTD.-2021US06550

PATIENT

DRUGS (4)
  1. PLAZOMICIN [Suspect]
     Active Substance: PLAZOMICIN
     Indication: Klebsiella infection
     Dosage: UNK
     Route: 065
  2. PLAZOMICIN [Suspect]
     Active Substance: PLAZOMICIN
     Indication: Urosepsis
  3. MEROPENEM\VABORBACTAM [Suspect]
     Active Substance: MEROPENEM\VABORBACTAM
     Indication: Klebsiella infection
     Dosage: UNK
     Route: 065
  4. MEROPENEM\VABORBACTAM [Suspect]
     Active Substance: MEROPENEM\VABORBACTAM
     Indication: Urosepsis

REACTIONS (3)
  - Gastrointestinal haemorrhage [Unknown]
  - Antibiotic level above therapeutic [Unknown]
  - Acute kidney injury [Unknown]
